FAERS Safety Report 9418970 (Version 2)
Quarter: 2013Q3

REPORT INFORMATION
  Report Type: Spontaneous
  Country: JP (occurrence: JP)
  Receive Date: 20130725
  Receipt Date: 20130814
  Transmission Date: 20140515
  Serious: Yes (Other)
  Sender: FDA-Public Use
  Company Number: PHHY2013JP076557

PATIENT
  Age: 74 Year
  Sex: Female

DRUGS (6)
  1. LAMISIL [Suspect]
     Indication: FUNGAL SKIN INFECTION
     Dosage: 125 MG, DAILY
     Route: 048
     Dates: start: 20130710
  2. BASEN//VOGLIBOSE [Interacting]
     Dosage: UNK UKN, UNK
     Route: 048
  3. GLACTIV [Interacting]
     Dosage: UNK UKN, UNK
     Route: 048
  4. AMLODIN [Interacting]
     Dosage: UNK UKN, UNK
     Route: 048
  5. LASIX [Interacting]
     Dosage: UNK UKN, UNK
     Route: 048
  6. LIPITOR [Interacting]
     Dosage: UNK UKN, UNK
     Route: 048

REACTIONS (2)
  - Drug interaction [Unknown]
  - Blood glucose increased [Recovered/Resolved]
